FAERS Safety Report 8469722-X (Version None)
Quarter: 2012Q2

REPORT INFORMATION
  Report Type: 
  Country: None (occurrence: None)
  Receive Date: 20120626
  Receipt Date: 20120620
  Transmission Date: 20120825
  Serious: Yes (Other)
  Sender: FDA-Public Use
  Company Number: US-PFIZER INC-2012150979

PATIENT
  Sex: Female
  Weight: 109 kg

DRUGS (5)
  1. PRISTIQ [Suspect]
     Dosage: 100 MG, DAILY
     Dates: start: 20100101
  2. PHENTERMINE [Suspect]
     Indication: WEIGHT INCREASED
     Dosage: 37.5 MG, DAILY
     Dates: start: 20120401, end: 20120619
  3. PRISTIQ [Suspect]
     Indication: DEPRESSION
     Dosage: 50 MG, DAILY
     Dates: start: 20100101
  4. SINGULAIR [Concomitant]
     Indication: RHINITIS ALLERGIC
     Dosage: 10 MG, DAILY
  5. PHENTERMINE [Suspect]
     Indication: OBESITY

REACTIONS (3)
  - BACK PAIN [None]
  - HYPERTENSION [None]
  - MYALGIA [None]
